FAERS Safety Report 10341508 (Version 4)
Quarter: 2014Q4

REPORT INFORMATION
  Report Type: Spontaneous
  Country: JP (occurrence: JP)
  Receive Date: 20140725
  Receipt Date: 20141009
  Transmission Date: 20150528
  Serious: Yes (Life-Threatening, Hospitalization)
  Sender: FDA-Public Use
  Company Number: JP-BRISTOL-MYERS SQUIBB COMPANY-20999785

PATIENT
  Age: 80 Year
  Sex: Male
  Weight: 62.5 kg

DRUGS (3)
  1. LOSARTAN POTASSIUM + HCTZ [Concomitant]
     Active Substance: HYDROCHLOROTHIAZIDE\LOSARTAN
     Indication: HYPERTENSION
     Route: 048
     Dates: start: 20090313
  2. NORVASC [Concomitant]
     Active Substance: AMLODIPINE BESYLATE
     Indication: HYPERTENSION
     Route: 048
     Dates: start: 20090313
  3. ELIQUIS [Suspect]
     Active Substance: APIXABAN
     Dosage: STRNGTH: 2.5MG
     Route: 048
     Dates: start: 20140314

REACTIONS (1)
  - Lower gastrointestinal haemorrhage [Recovered/Resolved]

NARRATIVE: CASE EVENT DATE: 201404
